FAERS Safety Report 13045835 (Version 1)
Quarter: 2016Q4

REPORT INFORMATION
  Report Type: Other
  Country: US (occurrence: US)
  Receive Date: 20161220
  Receipt Date: 20161220
  Transmission Date: 20170207
  Serious: Yes (Hospitalization)
  Sender: FDA-Public Use
  Company Number: US-ACORDA-ACO_131399_2016

PATIENT
  Sex: Female
  Weight: 61.22 kg

DRUGS (2)
  1. AMPYRA [Suspect]
     Active Substance: DALFAMPRIDINE
     Indication: MULTIPLE SCLEROSIS
     Dosage: 10 MG, BID
     Route: 048
     Dates: start: 2015
  2. BETASERON [Suspect]
     Active Substance: INTERFERON BETA-1B
     Indication: PRODUCT USED FOR UNKNOWN INDICATION
     Dosage: UNK
     Route: 051

REACTIONS (5)
  - Influenza like illness [Not Recovered/Not Resolved]
  - Back pain [Not Recovered/Not Resolved]
  - Gastritis [Recovered/Resolved]
  - Tooth infection [Unknown]
  - Gait disturbance [Not Recovered/Not Resolved]
